FAERS Safety Report 4846540-2 (Version None)
Quarter: 2005Q4

REPORT INFORMATION
  Report Type: 
  Country: None (occurrence: None)
  Receive Date: 20051202
  Receipt Date: 20051116
  Transmission Date: 20060501
  Serious: Yes (Hospitalization, Congenital Anomaly)
  Sender: FDA-Public Use
  Company Number: 8013248

PATIENT
  Sex: Male
  Weight: 6.9 kg

DRUGS (7)
  1. KEPPRA [Suspect]
     Dosage: VIA
     Dates: end: 20050516
  2. ZYRTEC [Suspect]
     Indication: HYPERSENSITIVITY
     Dosage: VIA
  3. DILANTIN [Suspect]
     Indication: EPILEPSY
     Dosage: VIA
  4. PAXIL [Suspect]
     Indication: DEPRESSION
     Dosage: VIA
  5. SEROQUEL [Suspect]
     Indication: SOMNOLENCE
     Dosage: VIA
  6. CITRUCEL [Concomitant]
  7. FOLIC ACID [Concomitant]

REACTIONS (5)
  - ADRENAL INSUFFICIENCY NEONATAL [None]
  - ARNOLD-CHIARI MALFORMATION [None]
  - DEVELOPMENTAL DELAY [None]
  - DRUG EXPOSURE DURING PREGNANCY [None]
  - PREMATURE BABY [None]
